FAERS Safety Report 8789484 (Version 1)
Quarter: 2012Q4

REPORT INFORMATION
  Report Type: Spontaneous
  Country: US (occurrence: None)
  Receive Date: 20120910
  Receipt Date: 20120910
  Transmission Date: 20130627
  Serious: Yes (Other)
  Sender: FDA-Public Use
  Company Number: None

PATIENT
  Age: 31 Year
  Sex: Female
  Weight: 59.42 kg

DRUGS (1)
  1. TOPIRAMATE [Suspect]
     Indication: MIGRAINE
     Dosage: 25mg 2 tabs twice daily po
     Route: 048
     Dates: start: 20120830, end: 20120915

REACTIONS (10)
  - Pyrexia [None]
  - Nausea [None]
  - Dizziness [None]
  - Diarrhoea [None]
  - Speech disorder [None]
  - Vision blurred [None]
  - Decreased appetite [None]
  - Memory impairment [None]
  - Disturbance in attention [None]
  - Dysgeusia [None]
